FAERS Safety Report 4693709-6 (Version None)
Quarter: 2005Q2

REPORT INFORMATION
  Report Type: 
  Country: None (occurrence: None)
  Receive Date: 20050615
  Receipt Date: 20050531
  Transmission Date: 20051028
  Serious: Yes (Hospitalization, Other)
  Sender: FDA-Public Use
  Company Number: USA050599346

PATIENT
  Age: 81 Year
  Sex: Female

DRUGS (3)
  1. FORTEO [Suspect]
     Indication: OSTEOPOROSIS
     Dates: start: 20050414
  2. ECHINACEA  /01323501/ (ECHINACEA PURPUREA) [Concomitant]
  3. DIGOXIN [Concomitant]

REACTIONS (3)
  - CONTUSION [None]
  - HAEMATEMESIS [None]
  - PULMONARY EMBOLISM [None]
